FAERS Safety Report 9380720 (Version 6)
Quarter: 2015Q2

REPORT INFORMATION
  Report Type: Report from Study
  Country: NL (occurrence: NL)
  Receive Date: 20130702
  Receipt Date: 20150522
  Transmission Date: 20150821
  Serious: Yes (Hospitalization)
  Sender: FDA-Public Use
  Company Number: NL-JNJFOC-20130700097

PATIENT
  Age: 64 Year
  Sex: Male
  Weight: 85.1 kg

DRUGS (22)
  1. CANAGLIFLOZIN [Suspect]
     Active Substance: CANAGLIFLOZIN
     Route: 048
  2. BISOPROLOL [Concomitant]
     Active Substance: BISOPROLOL
     Indication: CARDIOVASCULAR EVENT PROPHYLAXIS
     Route: 048
     Dates: start: 20070619
  3. TOPICORTE [Concomitant]
     Active Substance: DESOXIMETASONE
     Route: 048
     Dates: start: 20121207
  4. LANTUS [Concomitant]
     Active Substance: INSULIN GLARGINE
     Indication: DIABETES MELLITUS
     Dates: start: 20121203, end: 20121210
  5. LANTUS [Concomitant]
     Active Substance: INSULIN GLARGINE
     Indication: DIABETES MELLITUS
     Dates: start: 20130507, end: 20130510
  6. ASCAL [Concomitant]
     Active Substance: CARBASALATE
     Indication: PROPHYLAXIS
     Route: 048
     Dates: start: 20111209, end: 20120523
  7. METFORMIN [Concomitant]
     Active Substance: METFORMIN HYDROCHLORIDE
     Indication: DIABETES MELLITUS
     Dates: start: 200803
  8. IBUPROFEN. [Concomitant]
     Active Substance: IBUPROFEN
     Route: 048
     Dates: start: 20120604, end: 20120609
  9. LANTUS [Concomitant]
     Active Substance: INSULIN GLARGINE
     Indication: DIABETES MELLITUS
     Dates: start: 20101103, end: 20121203
  10. LISINOPRIL. [Concomitant]
     Active Substance: LISINOPRIL
     Indication: NEPHROPATHY
     Route: 048
     Dates: start: 20090526
  11. CRESTOR [Concomitant]
     Active Substance: ROSUVASTATIN CALCIUM
     Indication: PROPHYLAXIS
     Route: 048
     Dates: start: 20070619
  12. ASCAL [Concomitant]
     Active Substance: CARBASALATE
     Indication: PROPHYLAXIS
     Route: 048
     Dates: start: 20070619, end: 20111201
  13. PARACETAMOL [Concomitant]
     Active Substance: ACETAMINOPHEN
     Route: 048
     Dates: start: 20120526, end: 20120604
  14. DERMOVATE [Concomitant]
     Active Substance: CLOBETASOL
     Route: 061
     Dates: start: 20121207
  15. SPIRIVA [Concomitant]
     Active Substance: TIOTROPIUM BROMIDE MONOHYDRATE
     Indication: ASTHMA
     Route: 045
     Dates: start: 2000
  16. LANTUS [Concomitant]
     Active Substance: INSULIN GLARGINE
     Indication: DIABETES MELLITUS
     Dates: start: 20130510
  17. LANTUS [Concomitant]
     Active Substance: INSULIN GLARGINE
     Indication: DIABETES MELLITUS
     Dates: start: 20091112
  18. CANAGLIFLOZIN [Suspect]
     Active Substance: CANAGLIFLOZIN
     Indication: TYPE 2 DIABETES MELLITUS
     Route: 048
     Dates: start: 20101104, end: 20130704
  19. SYMBICORT [Concomitant]
     Active Substance: BUDESONIDE\FORMOTEROL FUMARATE DIHYDRATE
     Indication: ASTHMA
     Route: 055
     Dates: start: 2000
  20. KETOCONAZOLE SHAMPOO [Concomitant]
     Route: 062
     Dates: start: 20110805
  21. ASCAL [Concomitant]
     Active Substance: CARBASALATE
     Indication: PROPHYLAXIS
     Route: 048
     Dates: start: 20120526
  22. LANTUS [Concomitant]
     Active Substance: INSULIN GLARGINE
     Indication: DIABETES MELLITUS
     Dates: start: 20121210, end: 20130507

REACTIONS (1)
  - Transitional cell carcinoma [Recovered/Resolved]

NARRATIVE: CASE EVENT DATE: 201206
